FAERS Safety Report 16862151 (Version 3)
Quarter: 2019Q4

REPORT INFORMATION
  Report Type: Spontaneous
  Country: AU (occurrence: AU)
  Receive Date: 20190927
  Receipt Date: 20191015
  Transmission Date: 20200122
  Serious: Yes (Other)
  Sender: FDA-Public Use
  Company Number: AU-PFIZER INC-2019415424

PATIENT
  Age: 30 Year
  Sex: Female

DRUGS (3)
  1. RELPAX [Suspect]
     Active Substance: ELETRIPTAN HYDROBROMIDE
     Indication: MIGRAINE
     Dosage: 80 MG, UNK
  2. NEUROFEN [Concomitant]
     Active Substance: IBUPROFEN
     Indication: MIGRAINE
     Dosage: WHEN NEEDED
  3. PANADOL [Concomitant]
     Active Substance: ACETAMINOPHEN
     Indication: MIGRAINE
     Dosage: WHEN NEEDED

REACTIONS (2)
  - Therapeutic product effect incomplete [Unknown]
  - Drug dependence [Unknown]
